FAERS Safety Report 9921040 (Version 1)
Quarter: 2014Q1

REPORT INFORMATION
  Report Type: Report from Study
  Country: US (occurrence: US)
  Receive Date: 20140225
  Receipt Date: 20140225
  Transmission Date: 20141002
  Serious: Yes (Other)
  Sender: FDA-Public Use
  Company Number: US-ROCHE-1349837

PATIENT
  Sex: Female

DRUGS (4)
  1. CATHFLO ACTIVASE [Suspect]
     Indication: PRODUCT USED FOR UNKNOWN INDICATION
     Route: 065
     Dates: start: 20140201, end: 20140202
  2. CATHFLO ACTIVASE [Suspect]
     Route: 065
     Dates: start: 20140131, end: 20140131
  3. INSULIN [Concomitant]
  4. ASPIRIN [Concomitant]

REACTIONS (10)
  - Cardiac failure congestive [Unknown]
  - Atrial fibrillation [Unknown]
  - Retinal detachment [Unknown]
  - Blindness unilateral [Unknown]
  - Sleep apnoea syndrome [Unknown]
  - Diabetic retinopathy [Unknown]
  - Essential hypertension [Unknown]
  - Cataract diabetic [Unknown]
  - Corneal disorder [Unknown]
  - Acidosis [Unknown]
